FAERS Safety Report 9741607 (Version 1)
Quarter: 2013Q4

REPORT INFORMATION
  Report Type: Spontaneous
  Country: US (occurrence: US)
  Receive Date: 20131210
  Receipt Date: 20131210
  Transmission Date: 20140711
  Serious: No
  Sender: FDA-Public Use
  Company Number: US-BIOGENIDEC-2013BI000304

PATIENT
  Age: 54 Year
  Sex: Female

DRUGS (3)
  1. AVONEX [Suspect]
     Indication: MULTIPLE SCLEROSIS
     Route: 030
  2. AVONEX [Suspect]
     Indication: MULTIPLE SCLEROSIS
     Route: 030
     Dates: start: 20120918
  3. PSEUDOEPHEDRINE [Concomitant]
     Indication: UPPER-AIRWAY COUGH SYNDROME

REACTIONS (21)
  - Muscular dystrophy [Not Recovered/Not Resolved]
  - Arthropathy [Not Recovered/Not Resolved]
  - Burning sensation [Not Recovered/Not Resolved]
  - Vertigo [Recovered/Resolved]
  - Vision blurred [Recovered/Resolved]
  - Dry skin [Not Recovered/Not Resolved]
  - Injection site haemorrhage [Recovered/Resolved]
  - Dry mouth [Not Recovered/Not Resolved]
  - Influenza [Not Recovered/Not Resolved]
  - Anger [Recovered/Resolved]
  - Back pain [Unknown]
  - Contusion [Not Recovered/Not Resolved]
  - Muscle spasms [Not Recovered/Not Resolved]
  - Depression [Recovered/Resolved]
  - Headache [Not Recovered/Not Resolved]
  - Myalgia [Recovered/Resolved]
  - Musculoskeletal stiffness [Recovered/Resolved]
  - Suicidal ideation [Recovered/Resolved]
  - Joint stiffness [Not Recovered/Not Resolved]
  - Multiple sclerosis relapse [Recovered/Resolved]
  - Nausea [Recovered/Resolved]
